FAERS Safety Report 23909922 (Version 2)
Quarter: 2024Q2

REPORT INFORMATION
  Report Type: Spontaneous
  Country: US (occurrence: US)
  Receive Date: 20240528
  Receipt Date: 20240608
  Transmission Date: 20240716
  Serious: Yes (Life-Threatening, Hospitalization)
  Sender: FDA-Public Use
  Company Number: US-TEVA-VS-3202071

PATIENT
  Age: 52 Year
  Sex: Female

DRUGS (1)
  1. VENLAFAXINE [Suspect]
     Active Substance: VENLAFAXINE HYDROCHLORIDE
     Indication: Product used for unknown indication
     Dosage: ADMINISTERED 30 TABLETS
     Route: 065

REACTIONS (7)
  - Intentional overdose [Unknown]
  - Serotonin syndrome [Recovering/Resolving]
  - Acute respiratory distress syndrome [Recovering/Resolving]
  - Clonus [Recovering/Resolving]
  - Cognitive disorder [Recovering/Resolving]
  - Seizure [Recovering/Resolving]
  - Electrocardiogram QT prolonged [Recovering/Resolving]
